FAERS Safety Report 18200535 (Version 2)
Quarter: 2021Q3

REPORT INFORMATION
  Report Type: Spontaneous
  Country: IT (occurrence: IT)
  Receive Date: 20200826
  Receipt Date: 20210928
  Transmission Date: 20211014
  Serious: Yes (Other)
  Sender: FDA-Public Use
  Company Number: IT-ELI_LILLY_AND_COMPANY-IT201903004618

PATIENT
  Sex: Male
  Weight: 60 kg

DRUGS (3)
  1. IMMUTREX [Interacting]
     Active Substance: METHOTREXATE SODIUM
     Dosage: 10 MG, UNKNOWN
     Route: 065
     Dates: start: 20180901, end: 20181213
  2. OLUMIANT [Suspect]
     Active Substance: BARICITINIB
     Indication: RHEUMATOID ARTHRITIS
     Dosage: 4 MG, UNKNOWN
     Route: 065
     Dates: start: 20180802, end: 20181223
  3. IMMUTREX [Interacting]
     Active Substance: METHOTREXATE SODIUM
     Indication: RHEUMATOID ARTHRITIS
     Dosage: 12.5 MG, UNKNOWN
     Route: 065
     Dates: start: 20180202, end: 20180831

REACTIONS (24)
  - Varicose vein [Not Recovered/Not Resolved]
  - Gastrooesophageal reflux disease [Not Recovered/Not Resolved]
  - Swollen tongue [Not Recovered/Not Resolved]
  - Taste disorder [Not Recovered/Not Resolved]
  - Oropharyngeal pain [Not Recovered/Not Resolved]
  - Temperature intolerance [Not Recovered/Not Resolved]
  - Dysphagia [Not Recovered/Not Resolved]
  - Nasopharyngitis [Not Recovered/Not Resolved]
  - Salivary gland disorder [Unknown]
  - Productive cough [Unknown]
  - Mouth ulceration [Not Recovered/Not Resolved]
  - Food allergy [Not Recovered/Not Resolved]
  - Psychological trauma [Not Recovered/Not Resolved]
  - Plicated tongue [Not Recovered/Not Resolved]
  - Depressed mood [Not Recovered/Not Resolved]
  - Nausea [Unknown]
  - Tonsillar hypertrophy [Not Recovered/Not Resolved]
  - Aphthous ulcer [Not Recovered/Not Resolved]
  - Regurgitation [Not Recovered/Not Resolved]
  - Upper airway obstruction [Not Recovered/Not Resolved]
  - Weight decreased [Not Recovered/Not Resolved]
  - Dysgeusia [Not Recovered/Not Resolved]
  - Drug interaction [Unknown]
  - Hypophagia [Not Recovered/Not Resolved]
